FAERS Safety Report 12651020 (Version 1)
Quarter: 2016Q3

REPORT INFORMATION
  Report Type: Spontaneous
  Country: US (occurrence: None)
  Receive Date: 20160812
  Receipt Date: 20160812
  Transmission Date: 20161109
  Serious: Yes (Life-Threatening, Hospitalization)
  Sender: FDA-Public Use
  Company Number: None

PATIENT
  Age: 54 Year
  Sex: Male
  Weight: 118 kg

DRUGS (1)
  1. WARFARIN [Suspect]
     Active Substance: WARFARIN

REACTIONS (5)
  - Haemorrhagic stroke [None]
  - Drug dose omission [None]
  - Hypertension [None]
  - International normalised ratio decreased [None]
  - Hemiparesis [None]

NARRATIVE: CASE EVENT DATE: 20150906
